FAERS Safety Report 5284188-9 (Version None)
Quarter: 2007Q2

REPORT INFORMATION
  Report Type: 
  Country: None (occurrence: None)
  Receive Date: 20070403
  Receipt Date: 20070321
  Transmission Date: 20071010
  Serious: Yes (Other)
  Sender: FDA-Public Use
  Company Number: PHBS2007NL04233

PATIENT
  Age: 70 Year
  Sex: Female

DRUGS (5)
  1. DIOVAN [Suspect]
     Dosage: 160 MG DAILY
     Route: 048
     Dates: start: 20061114, end: 20070306
  2. SERESTA [Concomitant]
     Dosage: 1 TABLET ONCE OR TWICE DAILY
     Route: 048
  3. THIAMAZOLE [Concomitant]
     Dosage: 1 TABLET, QD
     Route: 048
  4. OMEPRAZOLE [Concomitant]
     Dosage: 1 TABLET, QD
     Route: 048
  5. NAPROXEN [Concomitant]
     Dosage: 1 TABLET ONCE OR TWICE A DAY
     Route: 048

REACTIONS (2)
  - DEPRESSION [None]
  - MOOD ALTERED [None]
